FAERS Safety Report 13633734 (Version 1)
Quarter: 2017Q2

REPORT INFORMATION
  Report Type: Spontaneous
  Country: US (occurrence: US)
  Receive Date: 20170531
  Receipt Date: 20170531
  Transmission Date: 20170830
  Serious: No
  Sender: FDA-Public Use
  Company Number: US-ASTELLAS-1568689

PATIENT
  Sex: Female

DRUGS (4)
  1. COLCRYS [Concomitant]
     Active Substance: COLCHICINE
  2. COLCHICINE. [Concomitant]
     Active Substance: COLCHICINE
  3. DIAZEPAM. [Concomitant]
     Active Substance: DIAZEPAM
  4. TARCEVA [Suspect]
     Active Substance: ERLOTINIB HYDROCHLORIDE
     Indication: LUNG NEOPLASM MALIGNANT
     Dosage: EVERY OTHER DAY
     Route: 048
     Dates: start: 20110526

REACTIONS (3)
  - Alopecia [Unknown]
  - Rash [Unknown]
  - Memory impairment [Unknown]
